FAERS Safety Report 21186569 (Version 1)
Quarter: 2022Q3

REPORT INFORMATION
  Report Type: Spontaneous
  Country: US (occurrence: US)
  Receive Date: 20220808
  Receipt Date: 20220808
  Transmission Date: 20221027
  Serious: No
  Sender: FDA-Public Use
  Company Number: US-PFIZER INC-202201037762

PATIENT
  Age: 72 Year
  Sex: Male
  Weight: 84.37 kg

DRUGS (2)
  1. PAXLOVID [Suspect]
     Active Substance: NIRMATRELVIR\RITONAVIR
     Indication: COVID-19 treatment
     Dosage: UNK, 2X/DAY
     Dates: start: 20220802
  2. MUCUS RELIEF DM [Concomitant]
     Active Substance: DEXTROMETHORPHAN HYDROBROMIDE\GUAIFENESIN
     Indication: COVID-19
     Dosage: UNK, 2X/DAY

REACTIONS (4)
  - Overdose [Unknown]
  - Diarrhoea [Unknown]
  - Ageusia [Unknown]
  - Rash [Unknown]

NARRATIVE: CASE EVENT DATE: 20220803
